FAERS Safety Report 9183301 (Version 2)
Quarter: 2013Q2

REPORT INFORMATION
  Report Type: Spontaneous
  Country: US (occurrence: US)
  Receive Date: 20130322
  Receipt Date: 20130401
  Transmission Date: 20140414
  Serious: Yes (Hospitalization, Other)
  Sender: FDA-Public Use
  Company Number: US-BAXTER-2013BAX010318

PATIENT
  Age: 70 Year
  Sex: Male

DRUGS (2)
  1. DIANEAL LOW CALCIUM [Suspect]
     Indication: PERITONEAL DIALYSIS
     Route: 033
  2. DIANEAL LOW CALCIUM [Suspect]
     Indication: PERITONEAL DIALYSIS
     Route: 033

REACTIONS (13)
  - Coronary artery disease [Unknown]
  - Aortic dilatation [Unknown]
  - Haemorrhage [Not Recovered/Not Resolved]
  - Ultrafiltration failure [Not Recovered/Not Resolved]
  - Urine output decreased [Recovering/Resolving]
  - Erythroblast count abnormal [Recovering/Resolving]
  - Asthenia [Recovering/Resolving]
  - Haematuria [Recovering/Resolving]
  - Sepsis [Recovering/Resolving]
  - International normalised ratio increased [Recovering/Resolving]
  - Hypophagia [Recovering/Resolving]
  - Cholecystitis infective [Recovering/Resolving]
  - Electrolyte imbalance [Recovering/Resolving]
